FAERS Safety Report 7352492-6 (Version None)
Quarter: 2011Q1

REPORT INFORMATION
  Report Type: 
  Country: None (occurrence: None)
  Receive Date: 20110225
  Receipt Date: 20101221
  Transmission Date: 20110831
  Serious: No
  Sender: FDA-Public Use
  Company Number: 320574

PATIENT
  Age: 51 Year
  Sex: Female

DRUGS (4)
  1. VICTOZA [Suspect]
     Indication: TYPE 2 DIABETES MELLITUS
     Dosage: 0.6 MG, QD, SUBCUTANEOUS, 1.2 MG, QD, SUBCUTANEOUS, 1.8, SINGLE, SUBCUTANEOUS, 1.8 MG, SINGLE, SC
     Route: 058
     Dates: start: 20101201
  2. VICTOZA [Suspect]
     Indication: TYPE 2 DIABETES MELLITUS
     Dosage: 0.6 MG, QD, SUBCUTANEOUS, 1.2 MG, QD, SUBCUTANEOUS, 1.8, SINGLE, SUBCUTANEOUS, 1.8 MG, SINGLE, SC
     Route: 058
     Dates: start: 20101212, end: 20101212
  3. VICTOZA [Suspect]
     Indication: TYPE 2 DIABETES MELLITUS
     Dosage: 0.6 MG, QD, SUBCUTANEOUS, 1.2 MG, QD, SUBCUTANEOUS, 1.8, SINGLE, SUBCUTANEOUS, 1.8 MG, SINGLE, SC
     Route: 058
     Dates: start: 20101205
  4. VICTOZA [Suspect]
     Indication: TYPE 2 DIABETES MELLITUS
     Dosage: 0.6 MG, QD, SUBCUTANEOUS, 1.2 MG, QD, SUBCUTANEOUS, 1.8, SINGLE, SUBCUTANEOUS, 1.8 MG, SINGLE, SC
     Route: 058
     Dates: start: 20101214, end: 20101214

REACTIONS (1)
  - BLOOD GLUCOSE INCREASED [None]
